FAERS Safety Report 5009940-6 (Version None)
Quarter: 2006Q2

REPORT INFORMATION
  Report Type: 
  Country: None (occurrence: None)
  Receive Date: 20060524
  Receipt Date: 20060516
  Transmission Date: 20061013
  Serious: Yes (Hospitalization)
  Sender: FDA-Public Use
  Company Number: US-BRISTOL-MYERS SQUIBB COMPANY-13379144

PATIENT
  Age: 58 Year
  Sex: Male

DRUGS (3)
  1. REYATAZ [Suspect]
     Indication: HIV INFECTION
     Route: 048
  2. VIREAD [Concomitant]
  3. NORVIR [Concomitant]

REACTIONS (3)
  - BILIRUBIN CONJUGATED INCREASED [None]
  - HYPERBILIRUBINAEMIA [None]
  - JAUNDICE [None]
